FAERS Safety Report 18994366 (Version 2)
Quarter: 2021Q3

REPORT INFORMATION
  Report Type: Other
  Country: KR (occurrence: KR)
  Receive Date: 20210311
  Receipt Date: 20210809
  Transmission Date: 20211014
  Serious: Yes (Hospitalization)
  Sender: FDA-Public Use
  Company Number: KR-ROCHE-2749153

PATIENT
  Age: 79 Year
  Sex: Female
  Weight: 54 kg

DRUGS (5)
  1. AMODIPIN [Concomitant]
     Indication: HYPERTENSION
     Dosage: ONGOING
     Route: 048
  2. ATEZOLIZUMAB. [Suspect]
     Active Substance: ATEZOLIZUMAB
     Route: 042
     Dates: start: 20180412, end: 20180412
  3. ATEZOLIZUMAB. [Suspect]
     Active Substance: ATEZOLIZUMAB
     Route: 042
     Dates: start: 20180321, end: 20180321
  4. ATEZOLIZUMAB. [Suspect]
     Active Substance: ATEZOLIZUMAB
     Route: 042
     Dates: start: 20180503, end: 20180503
  5. ATEZOLIZUMAB. [Suspect]
     Active Substance: ATEZOLIZUMAB
     Indication: TRANSITIONAL CELL CARCINOMA
     Route: 042
     Dates: start: 20180207, end: 20180207

REACTIONS (4)
  - Hypocalcaemia [Recovering/Resolving]
  - Mental status changes [Recovered/Resolved]
  - Alanine aminotransferase increased [Recovering/Resolving]
  - Aspartate aminotransferase increased [Recovering/Resolving]

NARRATIVE: CASE EVENT DATE: 20180227
